FAERS Safety Report 7457334-6 (Version None)
Quarter: 2011Q2

REPORT INFORMATION
  Report Type: 
  Country: None (occurrence: None)
  Receive Date: 20110504
  Receipt Date: 20100528
  Transmission Date: 20111010
  Serious: No
  Sender: FDA-Public Use
  Company Number: US-KINGPHARMUSA00001-K201000684

PATIENT
  Age: 50 Year
  Sex: Female
  Weight: 92.971 kg

DRUGS (8)
  1. CLARITIN-D [Concomitant]
     Indication: SEASONAL ALLERGY
  2. MULTI-VITAMIN [Concomitant]
     Dosage: UNK
  3. SINGULAIR [Concomitant]
     Indication: ASTHMA
     Dosage: UNK
  4. ACTIQ [Concomitant]
     Indication: BREAKTHROUGH PAIN
     Dosage: UNK
  5. TRIAMTERENE AND HYDROCHLOROTHIAZID [Concomitant]
     Indication: HYPERTENSION
     Dosage: UNK
  6. AMBIEN [Concomitant]
     Indication: INSOMNIA
     Dosage: UNK
  7. AVINZA [Suspect]
     Indication: BACK PAIN
     Dosage: 90 MG, QD
     Route: 048
     Dates: start: 20050101
  8. LISINOPRIL [Concomitant]
     Indication: HYPERTENSION
     Dosage: UNK

REACTIONS (12)
  - DRUG WITHDRAWAL SYNDROME [None]
  - INSOMNIA [None]
  - DEHYDRATION [None]
  - CHEST PAIN [None]
  - MALAISE [None]
  - CONSTIPATION [None]
  - DIARRHOEA [None]
  - DRUG DIVERSION [None]
  - RESTLESS LEGS SYNDROME [None]
  - ABDOMINAL PAIN LOWER [None]
  - TREMOR [None]
  - DRUG INEFFECTIVE [None]
